FAERS Safety Report 25523858 (Version 1)
Quarter: 2025Q3

REPORT INFORMATION
  Report Type: Spontaneous
  Country: GB (occurrence: GB)
  Receive Date: 20250707
  Receipt Date: 20250707
  Transmission Date: 20251021
  Serious: Yes (Death)
  Sender: MYLAN
  Company Number: GB-MYLANLABS-2025M1054335

PATIENT
  Sex: Male

DRUGS (4)
  1. POSACONAZOLE [Suspect]
     Active Substance: POSACONAZOLE
     Indication: Mucormycosis
  2. POSACONAZOLE [Suspect]
     Active Substance: POSACONAZOLE
     Route: 065
  3. POSACONAZOLE [Suspect]
     Active Substance: POSACONAZOLE
     Route: 065
  4. POSACONAZOLE [Suspect]
     Active Substance: POSACONAZOLE

REACTIONS (1)
  - Drug ineffective [Fatal]
